FAERS Safety Report 9934234 (Version 3)
Quarter: 2014Q1

REPORT INFORMATION
  Report Type: Report from Study
  Country: JP (occurrence: JP)
  Receive Date: 20140228
  Receipt Date: 20140328
  Transmission Date: 20141002
  Serious: Yes (Death, Hospitalization)
  Sender: FDA-Public Use
  Company Number: JP-SA-THYM-1003154

PATIENT
  Age: 6 Year
  Sex: Male
  Weight: 19 kg

DRUGS (37)
  1. THYMOGLOBULIN [Suspect]
     Indication: ACUTE GRAFT VERSUS HOST DISEASE
     Dosage: 50 MG, QD
     Route: 042
     Dates: start: 20111122
  2. THYMOGLOBULIN [Suspect]
     Indication: ACUTE GRAFT VERSUS HOST DISEASE
     Dosage: 50 MG, QD
     Route: 042
     Dates: start: 20111125, end: 20111125
  3. VANCOMYCIN HYDROCHLORIDE [Concomitant]
     Indication: BACTERIAL INFECTION
     Dosage: UNK
     Dates: start: 20111108, end: 20111206
  4. FUROSEMIDE [Concomitant]
     Indication: HYPERTENSION
     Dosage: UNK
     Dates: start: 20111109, end: 20111211
  5. CICLOSPORIN [Concomitant]
     Indication: PROPHYLAXIS AGAINST GRAFT VERSUS HOST DISEASE
     Dosage: UNK
     Dates: start: 20111118, end: 20120113
  6. PREDNISOLONE [Concomitant]
     Indication: PROPHYLAXIS AGAINST GRAFT VERSUS HOST DISEASE
     Dosage: UNK
     Dates: start: 20111017, end: 20120113
  7. ALBUMIN HUMAN/GLUCOSE [Concomitant]
     Indication: HYPOALBUMINAEMIA
     Dosage: UNK
     Dates: start: 20111114, end: 20120113
  8. FENTANYL CITRATE [Concomitant]
     Indication: PAIN
     Dosage: UNK
     Dates: start: 20111023, end: 20120113
  9. PAZUFLOXACIN [Concomitant]
     Indication: BACTERIAL INFECTION
     Dosage: UNK
     Dates: start: 20111118, end: 20111201
  10. INSULIN HUMAN [Concomitant]
     Indication: HYPERGLYCAEMIA
     Dosage: UNK
  11. METHYLPREDNISOLONE SODIUM SUCCINATE [Concomitant]
     Indication: PREMEDICATION
     Dosage: UNK
     Dates: start: 20111122, end: 20111126
  12. FILGRASTIM [Concomitant]
     Indication: NEUTROPENIA
     Dosage: UNK
     Route: 066
     Dates: start: 20111108, end: 20111118
  13. MICAFUNGIN SODIUM [Concomitant]
     Indication: ANTIFUNGAL PROPHYLAXIS
     Dosage: UNK
     Dates: start: 20111104, end: 20111217
  14. MIDAZOLAM [Concomitant]
     Indication: SEDATION
     Dosage: UNK
     Dates: start: 20111115, end: 20120113
  15. NICARDIPINE HYDROCHLORIDE [Concomitant]
     Indication: HYPERTENSION
     Dosage: UNK
     Dates: start: 20111013, end: 20111229
  16. ELEMENMIC [Concomitant]
     Indication: MALNUTRITION
     Dosage: UNK
     Dates: start: 20111114, end: 20111117
  17. CYANOCOBALAMIN/PYRIDOXINE HYDROCHLORIDE/THIAMINE HYDROCHLORIDE [Concomitant]
     Indication: MALNUTRITION
     Dosage: UNK
     Dates: start: 20111114, end: 20111117
  18. DEXMEDETOMIDINE HYDROCHLORIDE [Concomitant]
     Indication: SEDATION
     Dosage: UNK
     Dates: start: 20111115, end: 20111205
  19. SODIUM CHLORIDE [Concomitant]
     Indication: DEHYDRATION
     Dosage: UNK
     Dates: start: 20111128, end: 20111214
  20. FAMOTIDINE [Concomitant]
     Indication: PROPHYLAXIS AGAINST GASTROINTESTINAL ULCER
     Dosage: UNK
     Dates: start: 20111017, end: 20120113
  21. ELECTROLYTE SOLUTIONS [Concomitant]
     Indication: MALNUTRITION
     Dosage: UNK
     Dates: start: 20111224, end: 20120113
  22. ELECTROLYTE SOLUTIONS [Concomitant]
     Indication: MALNUTRITION
     Dosage: UNK
     Dates: start: 20111208, end: 20111224
  23. ELECTROLYTE SOLUTIONS [Concomitant]
     Indication: MALNUTRITION
     Dosage: UNK
     Dates: start: 20111117, end: 20111208
  24. LENOGRASTIM [Concomitant]
     Indication: NEUTROPENIA
     Dosage: UNK
     Dates: start: 20111207, end: 20120106
  25. DAPTOMYCIN [Concomitant]
     Indication: BACTERIAL INFECTION
     Dosage: UNK
     Dates: start: 20111218, end: 20120113
  26. ITRACONAZOLE [Concomitant]
     Indication: ANTIFUNGAL PROPHYLAXIS
     Dosage: UNK
     Dates: start: 20111217, end: 20120113
  27. MINOCYCLINE HYDROCHLORIDE [Concomitant]
     Indication: BACTERIAL INFECTION
     Dosage: UNK
     Dates: start: 20111220, end: 20120104
  28. CEFOPERAZONE SODIUM/SULBACTAM SODIUM [Concomitant]
     Indication: BACTERIAL INFECTION
     Dosage: UNK
     Dates: start: 20111221, end: 20120104
  29. ALL OTHER THERAPEUTIC PRODUCTS [Concomitant]
     Indication: HYPOGAMMAGLOBULINAEMIA
     Dosage: UNK
     Dates: end: 20120110
  30. DINOPROST [Concomitant]
     Indication: ILEUS
     Dosage: UNK
     Dates: start: 20111221, end: 20120102
  31. METAMIZOLE SODIUM [Concomitant]
     Indication: PYREXIA
     Dosage: UNK
     Dates: start: 20111217, end: 20120112
  32. MEROPENEM TRIHYDRATE [Concomitant]
     Indication: BACTERIAL INFECTION
     Dosage: UNK
     Dates: start: 20120104, end: 20120110
  33. FOSFOMYCIN SODIUM [Concomitant]
     Indication: BACTERIAL INFECTION
     Dosage: UNK
     Dates: start: 20111210, end: 20111215
  34. RITUXIMAB [Concomitant]
     Indication: EPSTEIN-BARR VIRUS INFECTION
     Dosage: UNK
     Dates: start: 20111210, end: 20111210
  35. METHOTREXATE [Concomitant]
     Indication: GRAFT VERSUS HOST DISEASE
     Dosage: UNK
     Dates: start: 20111213, end: 20111217
  36. CEFEPIME HYDROCHLORIDE [Concomitant]
     Indication: BACTERIAL INFECTION
     Dosage: UNK
     Dates: start: 20111201, end: 20111209
  37. ALL OTHER THERAPEUTIC PRODUCTS [Concomitant]
     Indication: DEHYDRATION
     Dosage: UNK
     Dates: start: 20111114, end: 20111117

REACTIONS (3)
  - Viral haemorrhagic cystitis [Recovered/Resolved]
  - Respiratory failure [Fatal]
  - Graft versus host disease [Fatal]
